FAERS Safety Report 8889772 (Version 1)
Quarter: 2012Q4

REPORT INFORMATION
  Report Type: Spontaneous
  Country: JP (occurrence: None)
  Receive Date: 20121031
  Receipt Date: 20121031
  Transmission Date: 20130627
  Serious: Yes (Other)
  Sender: FDA-Public Use
  Company Number: JP 2007 0049

PATIENT
  Age: 52 Year
  Sex: Male

DRUGS (2)
  1. LIPIODOL (ETHIODIZED OIL) (ETHIODIZED OIL) [Suspect]
     Indication: CHEMOEMBOLIZATION
     Dosage: Intake rate: 1/1
     Route: 013
  2. CDDP (CISPLATIN) (CISPLATIN) [Concomitant]

REACTIONS (2)
  - Anaphylactic shock [None]
  - Off label use [None]
